FAERS Safety Report 20616825 (Version 3)
Quarter: 2025Q2

REPORT INFORMATION
  Report Type: Report from Study
  Country: IL (occurrence: IL)
  Receive Date: 20220321
  Receipt Date: 20250531
  Transmission Date: 20250717
  Serious: Yes (Hospitalization, Other)
  Sender: TAKEDA
  Company Number: IL-TAKEDA-2021TUS017515

PATIENT
  Age: 67 Year
  Sex: Male

DRUGS (2)
  1. VEDOLIZUMAB [Suspect]
     Active Substance: VEDOLIZUMAB
     Indication: Crohn^s disease
     Dates: start: 20181008, end: 20250225
  2. B12 [Concomitant]

REACTIONS (7)
  - Crohn^s disease [Unknown]
  - Umbilical hernia [Recovered/Resolved]
  - Pain [Recovering/Resolving]
  - Post procedural discharge [Unknown]
  - Procedural pain [Unknown]
  - Wound complication [Recovering/Resolving]
  - Abdominal pain [Recovering/Resolving]

NARRATIVE: CASE EVENT DATE: 20210308
